FAERS Safety Report 6221101-1 (Version None)
Quarter: 2009Q2

REPORT INFORMATION
  Report Type: 
  Country: None (occurrence: None)
  Receive Date: 20090610
  Receipt Date: 20090603
  Transmission Date: 20091009
  Serious: Yes (Hospitalization)
  Sender: FDA-Public Use
  Company Number: B0576361A

PATIENT
  Age: 65 Year
  Sex: Female

DRUGS (1)
  1. LAMICTAL [Suspect]
     Indication: EPILEPSY
     Route: 048
     Dates: start: 20090101, end: 20090501

REACTIONS (5)
  - BLISTER [None]
  - EPILEPSY [None]
  - FALL [None]
  - IMPAIRED HEALING [None]
  - LOSS OF CONSCIOUSNESS [None]
